FAERS Safety Report 6148442-0 (Version None)
Quarter: 2009Q2

REPORT INFORMATION
  Report Type: 
  Country: None (occurrence: None)
  Receive Date: 20090406
  Receipt Date: 20090324
  Transmission Date: 20091009
  Serious: Yes (Hospitalization, Other)
  Sender: FDA-Public Use
  Company Number: GXKR2007GB05808

PATIENT
  Age: 42 Year
  Sex: Male
  Weight: 79.6 kg

DRUGS (16)
  1. DIAZEPAM [Suspect]
     Indication: PANIC ATTACK
     Dosage: 5 MG,
     Dates: start: 20011019, end: 20020704
  2. DIAZEPAM [Suspect]
     Indication: PANIC ATTACK
     Dosage: 5 MG,
     Dates: start: 20041202
  3. TEMAZEPAM [Suspect]
     Dosage: 10 MG, QD
     Dates: start: 20020704
  4. ARIPIPRAZOLE [Concomitant]
  5. CODEINE PHOSPHATE AND ACETAMINOPHEN [Concomitant]
  6. CO-DYDRAMOL (DIHYDROCODEINE BITARTRATE, PARACETAMOL) [Concomitant]
  7. HUMAN INSULIN (PRB) (INSULIN HUMAN) [Concomitant]
  8. INSULIN DETEMIR (INSULIN DETEMIR) [Concomitant]
  9. MIRTAZAPINE [Concomitant]
  10. QVAR 9BECLOMETASONE DIPROPIONATE) [Concomitant]
  11. RISPERDAL [Concomitant]
  12. SALBUTAMOL (SALBUTAMOL) [Concomitant]
  13. SILDENAFIL CITRATE [Concomitant]
  14. SIMVASTATIN [Concomitant]
  15. TRIPTAFEN (AMITRIPTYLINE HYDROCHLORIDE, PERPHENAZINE) [Concomitant]
  16. FLUPENTIXOL DIHYDROCHLORIDESILDENAFIL (FLUPENTIXOL DIHYDROCHLORIDESILD [Concomitant]

REACTIONS (13)
  - CIRCULATORY COLLAPSE [None]
  - DEPRESSED LEVEL OF CONSCIOUSNESS [None]
  - DEPRESSION [None]
  - DIABETIC COMA [None]
  - FALL [None]
  - HALLUCINATION, AUDITORY [None]
  - IRRITABILITY [None]
  - MALAISE [None]
  - PANIC ATTACK [None]
  - PARANOIA [None]
  - POOR QUALITY SLEEP [None]
  - THIRST [None]
  - TYPE 1 DIABETES MELLITUS [None]
